FAERS Safety Report 8310014-7 (Version None)
Quarter: 2012Q2

REPORT INFORMATION
  Report Type: 
  Country: None (occurrence: None)
  Receive Date: 20120425
  Receipt Date: 20120420
  Transmission Date: 20120825
  Serious: Yes (Life-Threatening, Hospitalization, Other)
  Sender: FDA-Public Use
  Company Number: US-BAYER-2011-100291

PATIENT
  Age: 36 Year
  Sex: Female
  Weight: 88.435 kg

DRUGS (8)
  1. BEYAZ [Suspect]
     Indication: OVARIAN CYST
     Dates: start: 20110401, end: 20110704
  2. RONDEC [Concomitant]
     Dosage: UNK
     Route: 048
     Dates: start: 20110701
  3. AMOXICILLIN [Concomitant]
  4. TRAMADOL HCL [Concomitant]
  5. VENTOLIN [Concomitant]
     Dosage: UNK
     Route: 055
     Dates: start: 20110701
  6. BENTYL [Concomitant]
  7. YAZ [Suspect]
     Route: 048
     Dates: start: 20110401, end: 20110704
  8. BEYAZ [Suspect]
     Indication: CONTRACEPTION

REACTIONS (11)
  - ANHEDONIA [None]
  - DEEP VEIN THROMBOSIS [None]
  - PNEUMOTHORAX [None]
  - PULMONARY EMBOLISM [None]
  - TRAUMATIC LUNG INJURY [None]
  - INJURY [None]
  - PAIN [None]
  - PNEUMONIA [None]
  - ANXIETY [None]
  - PULMONARY INFARCTION [None]
  - PULMONARY THROMBOSIS [None]
